FAERS Safety Report 20710036 (Version 3)
Quarter: 2022Q2

REPORT INFORMATION
  Report Type: Spontaneous
  Country: CH (occurrence: CH)
  Receive Date: 20220414
  Receipt Date: 20220527
  Transmission Date: 20220721
  Serious: Yes (Other)
  Sender: FDA-Public Use
  Company Number: CH-MYLANLABS-2022M1025169

PATIENT
  Age: 43 Year
  Sex: Female
  Weight: 64 kg

DRUGS (5)
  1. ELIDEL [Suspect]
     Active Substance: PIMECROLIMUS
     Indication: Rosacea
     Dosage: IN THE EVENING
     Route: 065
     Dates: start: 20220323, end: 20220328
  2. ELIDEL [Suspect]
     Active Substance: PIMECROLIMUS
     Indication: Off label use
  3. SOOLANTRA [Concomitant]
     Active Substance: IVERMECTIN
     Indication: Rosacea
     Dosage: IN THE MORNING
     Route: 065
     Dates: start: 20220323, end: 20220328
  4. SOOLANTRA [Concomitant]
     Active Substance: IVERMECTIN
     Dosage: IN THE MORNING
     Route: 065
     Dates: start: 20220401
  5. ATORVASTATIN [Concomitant]
     Active Substance: ATORVASTATIN
     Indication: Product used for unknown indication
     Route: 065

REACTIONS (3)
  - Nodule [Recovered/Resolved]
  - Lymphadenopathy [Recovered/Resolved]
  - Off label use [Unknown]

NARRATIVE: CASE EVENT DATE: 20220323
